FAERS Safety Report 18428124 (Version 1)
Quarter: 2020Q4

REPORT INFORMATION
  Report Type: Spontaneous
  Country: CH (occurrence: CH)
  Receive Date: 20201026
  Receipt Date: 20201026
  Transmission Date: 20210114
  Serious: Yes (Other)
  Sender: FDA-Public Use
  Company Number: CH-ASTRAZENECA-2019SF07003

PATIENT
  Age: 28769 Day
  Sex: Female

DRUGS (21)
  1. VITAMIN B12 AMINO [Suspect]
     Active Substance: CYANOCOBALAMIN
     Route: 065
     Dates: start: 20190616, end: 20190730
  2. APROVEL [Concomitant]
     Active Substance: IRBESARTAN
     Dosage: 150.0MG UNKNOWN
     Route: 065
     Dates: start: 20190617
  3. PARACETAMOL [Concomitant]
     Active Substance: ACETAMINOPHEN
     Route: 048
     Dates: start: 20190620, end: 20190620
  4. XARELTO [Suspect]
     Active Substance: RIVAROXABAN
     Route: 065
  5. NEXIUM [Suspect]
     Active Substance: ESOMEPRAZOLE MAGNESIUM
     Indication: PRODUCT USED FOR UNKNOWN INDICATION
     Route: 048
     Dates: start: 20190617, end: 20190709
  6. LUVIT D3 [Concomitant]
     Active Substance: CHOLECALCIFEROL
     Route: 048
     Dates: start: 20190617
  7. MONURIL [Concomitant]
     Active Substance: FOSFOMYCIN TROMETHAMINE
     Indication: URINARY TRACT INFECTION
     Route: 048
  8. ACIDUM FOLICUM [Suspect]
     Active Substance: FOLIC ACID
     Route: 048
     Dates: start: 20190619, end: 20190730
  9. MOVICOL [Suspect]
     Active Substance: POLYETHYLENE GLYCOL 3350\POTASSIUM CHLORIDE\SODIUM BICARBONATE\SODIUM CHLORIDE
     Indication: CONSTIPATION
     Route: 048
     Dates: end: 20190724
  10. GLUCOPHAGE [Suspect]
     Active Substance: METFORMIN HYDROCHLORIDE
     Route: 048
     Dates: start: 20190619
  11. NOVORAPID [Concomitant]
     Active Substance: INSULIN ASPART
     Dosage: UNK
     Route: 058
  12. ATORVASTATINE [Suspect]
     Active Substance: ATORVASTATIN
     Route: 048
     Dates: start: 20190620
  13. CLEXANE [Suspect]
     Active Substance: ENOXAPARIN SODIUM
     Route: 058
     Dates: start: 20190628, end: 20190629
  14. LANTUS [Concomitant]
     Active Substance: INSULIN GLARGINE
     Route: 058
  15. CLEXANE [Suspect]
     Active Substance: ENOXAPARIN SODIUM
     Route: 058
     Dates: start: 20190627, end: 20190627
  16. XARELTO [Suspect]
     Active Substance: RIVAROXABAN
     Dosage: 20 MILLIGRAM, 2 TIMES A DAY
     Route: 065
  17. BELOKEN [Concomitant]
     Active Substance: METOPROLOL TARTRATE
     Route: 048
     Dates: start: 20190617
  18. FRAXIPARINE [Concomitant]
     Active Substance: NADROPARIN CALCIUM
     Route: 058
     Dates: start: 20190701
  19. ARIXTRA [Suspect]
     Active Substance: FONDAPARINUX SODIUM
     Route: 058
     Dates: start: 20190622, end: 20190626
  20. TORASEMIDE [Suspect]
     Active Substance: TORSEMIDE
     Route: 048
     Dates: start: 20190619, end: 20190705
  21. NADROPARINE [Concomitant]
     Active Substance: NADROPARIN
     Dosage: UNKNOWN
     Route: 065
     Dates: start: 20190701

REACTIONS (5)
  - Skin plaque [Recovered/Resolved]
  - Rash maculo-papular [Recovered/Resolved]
  - Eosinophilia [Recovered/Resolved]
  - Pruritus [Recovered/Resolved]
  - Erythema [Recovering/Resolving]

NARRATIVE: CASE EVENT DATE: 20190629
